FAERS Safety Report 8849409 (Version 1)
Quarter: 2012Q4

REPORT INFORMATION
  Report Type: Spontaneous
  Country: US (occurrence: None)
  Receive Date: 20121018
  Receipt Date: 20121018
  Transmission Date: 20130627
  Serious: Yes (Other)
  Sender: FDA-Public Use
  Company Number: None

PATIENT
  Age: 88 Year
  Sex: Female
  Weight: 78.47 kg

DRUGS (4)
  1. CYMBALTA 30 MG LILLY [Suspect]
     Indication: OSTEOARTHRITIS
     Dosage: 30mg Daily
     Dates: start: 20120915, end: 20120922
  2. CYMBALTA 30 MG LILLY [Suspect]
     Indication: PAIN
     Dosage: 30mg Daily
     Dates: start: 20120915, end: 20120922
  3. CYMBALTA 30 MG LILLY [Suspect]
     Indication: SLEEP DISORDER
     Dosage: 30mg Daily
     Dates: start: 20120915, end: 20120922
  4. CYMBALTA [Suspect]
     Dosage: 60mg Daily
     Dates: start: 20120923, end: 20121017

REACTIONS (11)
  - General physical health deterioration [None]
  - Hallucination, auditory [None]
  - Feeling abnormal [None]
  - Asthenia [None]
  - Restlessness [None]
  - Agitation [None]
  - Diarrhoea [None]
  - Nausea [None]
  - Feeling of body temperature change [None]
  - Insomnia [None]
  - Toxicity to various agents [None]
